FAERS Safety Report 21668909 (Version 1)
Quarter: 2022Q4

REPORT INFORMATION
  Report Type: Spontaneous
  Country: US (occurrence: None)
  Receive Date: 20221201
  Receipt Date: 20221201
  Transmission Date: 20230112
  Serious: Yes (Other)
  Sender: FDA-Public Use
  Company Number: None

PATIENT
  Age: 37 Year
  Sex: Male
  Weight: 95.85 kg

DRUGS (5)
  1. NOVOLOG [Suspect]
     Active Substance: INSULIN ASPART
     Indication: Type 1 diabetes mellitus
  2. HUMALOG [Suspect]
     Active Substance: INSULIN LISPRO
  3. HUMULIN NOS [Suspect]
     Active Substance: INSULIN HUMAN
  4. NOVOLOG [Concomitant]
     Active Substance: INSULIN ASPART
  5. Lanuts [Concomitant]

REACTIONS (2)
  - Drug ineffective [None]
  - Blood glucose abnormal [None]
